FAERS Safety Report 23961752 (Version 1)
Quarter: 2024Q2

REPORT INFORMATION
  Report Type: Spontaneous
  Country: US (occurrence: US)
  Receive Date: 20240611
  Receipt Date: 20240611
  Transmission Date: 20240716
  Serious: Yes (Other)
  Sender: FDA-Public Use
  Company Number: US-002147023-NVSC2024US121432

PATIENT

DRUGS (2)
  1. COSENTYX [Suspect]
     Active Substance: SECUKINUMAB
     Indication: Product used for unknown indication
     Dosage: UNK
     Route: 065
  2. PREDNISONE [Suspect]
     Active Substance: PREDNISONE
     Indication: Product used for unknown indication
     Dosage: UNK
     Route: 065

REACTIONS (10)
  - Immunodeficiency [Unknown]
  - Psoriatic arthropathy [Unknown]
  - Alopecia [Unknown]
  - Pain [Unknown]
  - Psoriasis [Unknown]
  - COVID-19 [Unknown]
  - Joint swelling [Unknown]
  - Gait disturbance [Unknown]
  - Weight increased [Unknown]
  - Dysstasia [Unknown]
